FAERS Safety Report 8595655-4 (Version None)
Quarter: 2012Q3

REPORT INFORMATION
  Report Type: 
  Country: None (occurrence: None)
  Receive Date: 20120801
  Receipt Date: 20120705
  Transmission Date: 20120928
  Serious: Yes (Other)
  Sender: FDA-Public Use
  Company Number: 001296916A

PATIENT
  Age: 51 Year
  Sex: Male

DRUGS (4)
  1. COZAAR [Concomitant]
  2. LASIX [Concomitant]
  3. CELEXA [Concomitant]
  4. SKIN BRIGHTENING DECOLLETE AND NECK TREATMENT SFF 1 [Suspect]
     Dosage: ONCE DERMAL
     Dates: start: 20120704

REACTIONS (4)
  - COUGH [None]
  - LIP SWELLING [None]
  - RASH ERYTHEMATOUS [None]
  - RASH PRURITIC [None]
